FAERS Safety Report 17706725 (Version 1)
Quarter: 2020Q2

REPORT INFORMATION
  Report Type: Spontaneous
  Country: US (occurrence: US)
  Receive Date: 20200424
  Receipt Date: 20200424
  Transmission Date: 20200714
  Serious: No
  Sender: FDA-Public Use
  Company Number: US-BAUSCH-BL-2020-011445

PATIENT
  Sex: Male

DRUGS (2)
  1. LATANOPROST OPHTHALMIC SOLUTION 0.005% [Suspect]
     Active Substance: LATANOPROST
     Indication: GLAUCOMA
     Dosage: FOR MANY YEARS, EACH EYE AT BEDTIME
     Route: 047
  2. LATANOPROST OPHTHALMIC SOLUTION 0.005% [Suspect]
     Active Substance: LATANOPROST
     Route: 047

REACTIONS (3)
  - Product quality issue [Unknown]
  - Eye pain [Recovered/Resolved]
  - Drug ineffective [Unknown]
